FAERS Safety Report 8931748 (Version 3)
Quarter: 2013Q1

REPORT INFORMATION
  Report Type: Spontaneous
  Country: US (occurrence: US)
  Receive Date: 20121128
  Receipt Date: 20130325
  Transmission Date: 20140127
  Serious: Yes (Hospitalization)
  Sender: FDA-Public Use
  Company Number: US-INCYTE CORPORATION-2012IN002387

PATIENT
  Age: 76 None
  Sex: Female

DRUGS (15)
  1. JAKAFI [Suspect]
     Indication: ESSENTIAL THROMBOCYTHAEMIA
     Dosage: 10 MG, BID
     Route: 048
     Dates: end: 201210
  2. JAKAFI [Suspect]
     Indication: MYELOFIBROSIS
     Dosage: 10 MG, QD
     Route: 048
     Dates: start: 20121114, end: 20121202
  3. JAKAFI [Suspect]
     Dosage: 10 MG, BID
     Route: 048
     Dates: start: 20121203
  4. HYDREA [Concomitant]
  5. PRAVASTATIN [Concomitant]
  6. AMIODARONE [Concomitant]
  7. SYNTHROID [Concomitant]
  8. PREMARIN [Concomitant]
  9. FOLIC ACID [Concomitant]
  10. PREDNISONE [Concomitant]
  11. WARFARIN [Concomitant]
  12. ZYRTEC [Concomitant]
  13. EFFEXOR [Concomitant]
  14. ASPIRIN [Concomitant]
  15. COLACE [Concomitant]

REACTIONS (5)
  - Cardiac disorder [Unknown]
  - Fall [Unknown]
  - Fatigue [Unknown]
  - Constipation [Unknown]
  - Dizziness [Unknown]
